FAERS Safety Report 4541151-0 (Version None)
Quarter: 2004Q4

REPORT INFORMATION
  Report Type: 
  Country: None (occurrence: None)
  Receive Date: 20041227
  Receipt Date: 20041217
  Transmission Date: 20050328
  Serious: Yes (Life-Threatening)
  Sender: FDA-Public Use
  Company Number: HQWYE045017DEC04

PATIENT
  Age: 82 Year
  Sex: Male

DRUGS (1)
  1. ANCARON (AMIODARONE, TABLET) [Suspect]
     Indication: VENTRICULAR TACHYCARDIA
     Dosage: ORAL
     Route: 048
     Dates: start: 20041111, end: 20041206

REACTIONS (6)
  - ANOREXIA [None]
  - BLOOD CREATININE INCREASED [None]
  - BLOOD UREA INCREASED [None]
  - CARDIOMEGALY [None]
  - MALAISE [None]
  - PULMONARY CONGESTION [None]
